FAERS Safety Report 24294963 (Version 2)
Quarter: 2025Q3

REPORT INFORMATION
  Report Type: Spontaneous
  Country: US (occurrence: US)
  Receive Date: 20240907
  Receipt Date: 20250908
  Transmission Date: 20251020
  Serious: No
  Sender: AIMMUNE
  Company Number: US-AIMMUNE THERAPEUTICS, INC.-2024AIMT01243

PATIENT

DRUGS (2)
  1. ZENPEP [Suspect]
     Active Substance: PANCRELIPASE AMYLASE\PANCRELIPASE LIPASE\PANCRELIPASE PROTEASE
     Indication: Pancreatic failure
     Route: 048
     Dates: start: 20220820
  2. ZENPEP [Suspect]
     Active Substance: PANCRELIPASE AMYLASE\PANCRELIPASE LIPASE\PANCRELIPASE PROTEASE
     Route: 048

REACTIONS (5)
  - Overgrowth bacterial [Recovered/Resolved]
  - Micturition urgency [Not Recovered/Not Resolved]
  - Pelvic floor muscle weakness [Not Recovered/Not Resolved]
  - Abdominal distension [Not Recovered/Not Resolved]
  - Defaecation urgency [Not Recovered/Not Resolved]

NARRATIVE: CASE EVENT DATE: 20220101
